FAERS Safety Report 8443123-2 (Version None)
Quarter: 2012Q2

REPORT INFORMATION
  Report Type: 
  Country: None (occurrence: None)
  Receive Date: 20120615
  Receipt Date: 20120606
  Transmission Date: 20120825
  Serious: Yes (Hospitalization)
  Sender: FDA-Public Use
  Company Number: US-MERCK-1206USA01181

PATIENT
  Age: 73 Year
  Sex: Male

DRUGS (1)
  1. SINEMET [Suspect]
     Route: 048

REACTIONS (5)
  - OVERDOSE [None]
  - FALL [None]
  - DELIRIUM [None]
  - MOVEMENT DISORDER [None]
  - TOXICITY TO VARIOUS AGENTS [None]
